FAERS Safety Report 11925442 (Version 4)
Quarter: 2019Q1

REPORT INFORMATION
  Report Type: Spontaneous
  Country: US (occurrence: US)
  Receive Date: 20160118
  Receipt Date: 20190204
  Transmission Date: 20190417
  Serious: Yes (Hospitalization, Other)
  Sender: FDA-Public Use
  Company Number: US-DSJP-DSU-2015-134297

PATIENT

DRUGS (10)
  1. TRIBENZOR [Suspect]
     Active Substance: AMLODIPINE BESYLATE\HYDROCHLOROTHIAZIDE\OLMESARTAN MEDOXOMIL
     Indication: HYPERTENSION
     Dosage: 40-5-25 MG 1 TABLET, DAILY
     Route: 048
     Dates: start: 20121030, end: 20121212
  2. TRIBENZOR [Suspect]
     Active Substance: AMLODIPINE BESYLATE\HYDROCHLOROTHIAZIDE\OLMESARTAN MEDOXOMIL
     Dosage: UNK
  3. BENICAR [Suspect]
     Active Substance: OLMESARTAN MEDOXOMIL
     Indication: PRODUCT USED FOR UNKNOWN INDICATION
     Dosage: UNK
     Dates: start: 20130821, end: 20150507
  4. BENICAR HCT [Suspect]
     Active Substance: HYDROCHLOROTHIAZIDE\OLMESARTAN MEDOXOMIL
     Indication: HYPERTENSION
     Dosage: UNK
     Route: 065
     Dates: start: 20121112
  5. SAVELLA [Concomitant]
     Active Substance: MILNACIPRAN HYDROCHLORIDE
     Indication: FIBROMYALGIA
     Dosage: 50 MG, QD
     Dates: start: 20120510
  6. BENICAR HCT [Suspect]
     Active Substance: HYDROCHLOROTHIAZIDE\OLMESARTAN MEDOXOMIL
     Dosage: 40-12.5 MG, ONCE DAILY
     Route: 048
     Dates: start: 20130307, end: 20151029
  7. SAVELLA [Concomitant]
     Active Substance: MILNACIPRAN HYDROCHLORIDE
     Indication: RHEUMATOID ARTHRITIS
  8. HYDROXYCHLOROQUINE [Concomitant]
     Active Substance: HYDROXYCHLOROQUINE
     Indication: RHEUMATOID ARTHRITIS
     Dosage: 2 MG, BID
     Dates: start: 20100302
  9. TIZANIDINE. [Concomitant]
     Active Substance: TIZANIDINE
     Indication: MUSCLE RELAXANT THERAPY
     Dosage: 4 MG, QD
     Dates: start: 20120913
  10. TRAMADOL. [Concomitant]
     Active Substance: TRAMADOL
     Indication: ANALGESIC THERAPY
     Dosage: 50 MG, PRN
     Dates: start: 20100101

REACTIONS (10)
  - Orthostatic hypotension [Recovered/Resolved]
  - Chronic kidney disease [Recovered/Resolved]
  - Headache [Recovered/Resolved]
  - Irritable bowel syndrome [Unknown]
  - Gastrointestinal haemorrhage [Recovered/Resolved]
  - Pancreatitis acute [Unknown]
  - Sprue-like enteropathy [Recovered/Resolved]
  - Pyelonephritis acute [Unknown]
  - Anxiety [Unknown]
  - Urosepsis [Unknown]

NARRATIVE: CASE EVENT DATE: 201306
